FAERS Safety Report 11637034 (Version 3)
Quarter: 2015Q4

REPORT INFORMATION
  Report Type: Spontaneous
  Country: JP (occurrence: JP)
  Receive Date: 20151016
  Receipt Date: 20151130
  Transmission Date: 20160304
  Serious: Yes (Hospitalization, Other)
  Sender: FDA-Public Use
  Company Number: JP-BAYER-2015-440605

PATIENT
  Age: 31 Year
  Sex: Female

DRUGS (1)
  1. YAZ [Suspect]
     Active Substance: DROSPIRENONE\ETHINYL ESTRADIOL
     Indication: HAEMORRHAGIC OVARIAN CYST
     Dosage: DAILY DOSE 1 DF
     Route: 048
     Dates: start: 20141017, end: 20151006

REACTIONS (3)
  - Blood triglycerides increased [Recovering/Resolving]
  - Off label use [None]
  - Pancreatitis acute [Recovered/Resolved]

NARRATIVE: CASE EVENT DATE: 20141017
